FAERS Safety Report 24214282 (Version 1)
Quarter: 2024Q3

REPORT INFORMATION
  Report Type: Spontaneous
  Country: US (occurrence: None)
  Receive Date: 20240814
  Receipt Date: 20240814
  Transmission Date: 20241017
  Serious: Yes (Other)
  Sender: Public
  Company Number: None

PATIENT
  Age: 1 Day
  Sex: Female
  Weight: 3.6 kg

DRUGS (2)
  1. HERBALS\MITRAGYNINE [Suspect]
     Active Substance: HERBALS\MITRAGYNINE
  2. DRONABINOL [Concomitant]
     Active Substance: DRONABINOL

REACTIONS (6)
  - Maternal exposure during pregnancy [None]
  - Drug withdrawal syndrome [None]
  - Blood cannabinoids [None]
  - Agitation neonatal [None]
  - Hypertonia neonatal [None]
  - Maternal drugs affecting foetus [None]

NARRATIVE: CASE EVENT DATE: 20240801
